FAERS Safety Report 8823556 (Version 1)
Quarter: 2012Q4

REPORT INFORMATION
  Report Type: 
  Country: US (occurrence: US)
  Receive Date: 20121003
  Receipt Date: 20121003
  Transmission Date: 20130627
  Serious: No
  Sender: FDA-Public Use
  Company Number: US-VERTEX PHARMACEUTICAL INC.-2012-021074

PATIENT
  Age: 52 Year
  Sex: Male
  Weight: 97.5 kg

DRUGS (6)
  1. VX-950 [Suspect]
     Indication: HEPATITIS C
     Dosage: 750 mg, tid
     Route: 048
  2. PEGASYS [Concomitant]
     Indication: HEPATITIS C
     Dosage: 180 ?g, UNK
     Route: 058
  3. RIBAPAK [Concomitant]
     Indication: HEPATITIS C
     Dosage: 1200 mg, qd
     Route: 048
  4. BENADRYL                           /00000402/ [Concomitant]
     Dosage: 25 mg, qd
     Route: 048
  5. NOVOLIN [Concomitant]
     Route: 058
  6. LEVOTHYROXIN [Concomitant]
     Dosage: 100 ?g, UNK
     Route: 048

REACTIONS (6)
  - Migraine [Unknown]
  - Furuncle [Unknown]
  - Dry skin [Unknown]
  - Diarrhoea [Unknown]
  - Rash [Unknown]
  - Pruritus [Unknown]
